FAERS Safety Report 20439732 (Version 1)
Quarter: 2022Q1

REPORT INFORMATION
  Report Type: Spontaneous
  Country: US (occurrence: None)
  Receive Date: 20220204
  Receipt Date: 20220204
  Transmission Date: 20220423
  Serious: Yes (Hospitalization)
  Sender: FDA-Public Use
  Company Number: None

PATIENT
  Age: 33 Year
  Sex: Male
  Weight: 145 kg

DRUGS (1)
  1. METFORMIN [Suspect]
     Active Substance: METFORMIN HYDROCHLORIDE
     Indication: Diabetes mellitus
     Dosage: FREQUENCY : DAILY;?
     Route: 048

REACTIONS (11)
  - Acute kidney injury [None]
  - Lactic acidosis [None]
  - Hypoglycaemia [None]
  - Decreased appetite [None]
  - Localised infection [None]
  - Vomiting [None]
  - Blood creatinine increased [None]
  - PCO2 decreased [None]
  - Blood lactic acid increased [None]
  - Blood pH decreased [None]
  - Contraindicated product prescribed [None]
